FAERS Safety Report 16752089 (Version 8)
Quarter: 2020Q1

REPORT INFORMATION
  Report Type: Spontaneous
  Country: US (occurrence: US)
  Receive Date: 20190828
  Receipt Date: 20200303
  Transmission Date: 20200409
  Serious: Yes (Death, Hospitalization, Other)
  Sender: FDA-Public Use
  Company Number: US-PFIZER INC-2019217089

PATIENT
  Age: 88 Year
  Sex: Male
  Weight: 63.49 kg

DRUGS (5)
  1. VYNDAQEL [Suspect]
     Active Substance: TAFAMIDIS MEGLUMINE
     Dosage: UNK
     Dates: start: 201906
  2. VYNDAQEL [Suspect]
     Active Substance: TAFAMIDIS MEGLUMINE
     Dosage: 1 DF, 1X/DAY (ONE PILL, A DAY)
     Route: 048
  3. ELIQUIS [Concomitant]
     Active Substance: APIXABAN
     Dosage: UNK
  4. VYNDAQEL [Suspect]
     Active Substance: TAFAMIDIS MEGLUMINE
     Indication: CARDIAC AMYLOIDOSIS
     Dosage: 80 MG, 1X/DAY (20 MG FOUR CAPSULES ONCE A DAY)
     Route: 048
  5. XALATAN [Concomitant]
     Active Substance: LATANOPROST
     Dosage: 2 GTT, UNK
     Route: 047

REACTIONS (14)
  - Pulmonary oedema [Unknown]
  - Asthenia [Unknown]
  - Oliguria [Unknown]
  - Fluid retention [Fatal]
  - Helicobacter gastritis [Recovered/Resolved]
  - Urinary tract infection [Recovered/Resolved]
  - Abdominal pain upper [Unknown]
  - Dysphagia [Unknown]
  - Head injury [Recovered/Resolved]
  - Renal function test abnormal [Unknown]
  - Underdose [Unknown]
  - Cardiac disorder [Unknown]
  - Fall [Recovered/Resolved]
  - Weight fluctuation [Unknown]

NARRATIVE: CASE EVENT DATE: 2019
